FAERS Safety Report 6856638-5 (Version None)
Quarter: 2010Q2

REPORT INFORMATION
  Report Type: 
  Country: None (occurrence: None)
  Receive Date: 20100630
  Receipt Date: 20100421
  Transmission Date: 20101027
  Serious: No
  Sender: FDA-Public Use
  Company Number: 1000013324

PATIENT
  Sex: Female

DRUGS (2)
  1. BYSTOLIC [Suspect]
  2. MULTAQ [Suspect]

REACTIONS (3)
  - ASTHENIA [None]
  - DIARRHOEA [None]
  - FATIGUE [None]
